FAERS Safety Report 6519758-0 (Version None)
Quarter: 2009Q4

REPORT INFORMATION
  Report Type: 
  Country: None (occurrence: None)
  Receive Date: 20091228
  Receipt Date: 20091215
  Transmission Date: 20100525
  Serious: Yes (Other)
  Sender: FDA-Public Use
  Company Number: TH-PFIZER INC-2009310659

PATIENT
  Age: 50 Year
  Sex: Male

DRUGS (23)
  1. SULPERAZON [Suspect]
     Indication: PNEUMONIA
     Dosage: 1.5 G, 2X/DAY
     Dates: start: 20091105, end: 20091110
  2. SULPERAZON [Suspect]
     Dosage: 1.5 G, 3X/DAY
     Dates: start: 20091111, end: 20091115
  3. SULPERAZON [Suspect]
     Dosage: UNK
     Dates: start: 20091116, end: 20091126
  4. METRONIDAZOLE AND METRONIDAZOLE BENZOATE AND METRONIDAZOLE HYDROCHLORI [Suspect]
     Indication: PNEUMONIA
     Dosage: 2 TABLETS, 3 TIMES DAILY
     Route: 042
     Dates: start: 20091124, end: 20091126
  5. METRONIDAZOLE AND METRONIDAZOLE BENZOATE AND METRONIDAZOLE HYDROCHLORI [Suspect]
     Dosage: UNK
     Dates: start: 20091201
  6. TIENAM [Suspect]
     Indication: PNEUMONIA
     Dosage: UNK
     Dates: start: 20091028, end: 20091109
  7. FOSFOMYCIN [Suspect]
     Indication: PNEUMONIA
     Dosage: 2 G, 2X/DAY
     Route: 042
     Dates: start: 20091111, end: 20091126
  8. OMEPRAZOLE [Concomitant]
     Dosage: UNK
     Route: 048
     Dates: start: 20091026, end: 20091127
  9. OMEPRAZOLE [Concomitant]
     Dosage: UNK
     Dates: start: 20091127, end: 20091128
  10. ASPIRIN [Concomitant]
     Dosage: UNK
     Dates: start: 20091025, end: 20091108
  11. SIMVASTATIN [Concomitant]
     Dosage: 10 MG, 1X/DAY
     Route: 048
     Dates: start: 20091026
  12. AMLODIPINE BESILATE [Concomitant]
     Dosage: 5 MG, UNK
     Dates: start: 20091107, end: 20091115
  13. AMLODIPINE BESILATE [Concomitant]
     Dosage: 5 MG, UNK
     Dates: start: 20091123
  14. DOXAZOSIN MESILATE [Concomitant]
     Dosage: 2 MG, UNK
     Dates: start: 20091101, end: 20091104
  15. DOXAZOSIN MESILATE [Concomitant]
     Dosage: 2 MG, UNK
     Dates: start: 20091124
  16. CALCIUM [Concomitant]
     Dosage: UNK
     Dates: start: 20091106
  17. LORAZEPAM [Concomitant]
     Dosage: UNK
     Dates: start: 20091107, end: 20091126
  18. AMIODARONE [Concomitant]
     Dosage: UNK
     Dates: start: 20091125, end: 20091125
  19. METHYLDOPA [Concomitant]
     Dosage: UNK
     Dates: start: 20091031, end: 20091104
  20. ATENOLOL [Concomitant]
     Dosage: UNK
     Dates: start: 20091109, end: 20091115
  21. NICARDIPINE [Concomitant]
     Dosage: UNK
     Dates: start: 20091025, end: 20091027
  22. NICARDIPINE [Concomitant]
     Dosage: UNK
     Dates: start: 20091101, end: 20091101
  23. NICARDIPINE [Concomitant]
     Dosage: UNK
     Dates: start: 20091109, end: 20091111

REACTIONS (1)
  - STEVENS-JOHNSON SYNDROME [None]
